FAERS Safety Report 11791046 (Version 1)
Quarter: 2015Q4

REPORT INFORMATION
  Report Type: Spontaneous
  Country: US (occurrence: US)
  Receive Date: 20151201
  Receipt Date: 20151201
  Transmission Date: 20160305
  Serious: Yes (Hospitalization)
  Sender: FDA-Public Use
  Company Number: US-SA-2015SA132263

PATIENT
  Age: 60 Year
  Sex: Female

DRUGS (2)
  1. CALCIUM ACETATE. [Suspect]
     Active Substance: CALCIUM ACETATE
     Indication: BLOOD PHOSPHORUS INCREASED
     Route: 065
  2. RENVELA [Suspect]
     Active Substance: SEVELAMER CARBONATE
     Indication: BLOOD PHOSPHORUS INCREASED
     Dosage: 800MG 2 TO 3 CC TID
     Route: 065
     Dates: start: 2015, end: 2015

REACTIONS (2)
  - Intestinal obstruction [Recovered/Resolved]
  - Blood calcium increased [Unknown]
